FAERS Safety Report 8247816-1 (Version None)
Quarter: 2012Q1

REPORT INFORMATION
  Report Type: 
  Country: None (occurrence: None)
  Receive Date: 20120330
  Receipt Date: 20120326
  Transmission Date: 20120608
  Serious: Yes (Other)
  Sender: FDA-Public Use
  Company Number: US-PFIZER INC-2012078228

PATIENT
  Sex: Female
  Weight: 89.342 kg

DRUGS (5)
  1. EFFEXOR XR [Suspect]
     Dosage: 150MG DAILY
     Dates: start: 20120101
  2. VENLAFAXINE HCL [Suspect]
     Indication: ANXIETY
     Dosage: 150 MG, DAILY
     Dates: start: 20110101, end: 20120101
  3. EFFEXOR XR [Suspect]
     Indication: ANXIETY
     Dosage: 75 MG, DAILY
  4. VENLAFAXINE HCL [Suspect]
     Indication: DEPRESSION
  5. EFFEXOR XR [Suspect]
     Indication: DEPRESSION
     Dosage: 150 MG, DAILY
     Dates: end: 20110101

REACTIONS (6)
  - FEELING ABNORMAL [None]
  - MALAISE [None]
  - ANXIETY [None]
  - CRYING [None]
  - DRUG INEFFECTIVE [None]
  - MENTAL DISORDER [None]
